FAERS Safety Report 21752865 (Version 1)
Quarter: 2022Q4

REPORT INFORMATION
  Report Type: Spontaneous
  Country: HR (occurrence: HR)
  Receive Date: 20221220
  Receipt Date: 20221220
  Transmission Date: 20230112
  Serious: Yes (Other)
  Sender: FDA-Public Use
  Company Number: None

PATIENT
  Age: 61 Year
  Sex: Female
  Weight: 62 kg

DRUGS (1)
  1. OCTREOTIDE ACETATE [Suspect]
     Active Substance: OCTREOTIDE ACETATE
     Indication: Neuroendocrine tumour
     Dosage: UNIT DOSE : 20 MG  , FREQUENCY TIME : 1 MONTH  , DURATION :  90 DAYS
     Dates: start: 20220905, end: 20221124

REACTIONS (10)
  - Diarrhoea [Unknown]
  - Administration site nodule [Unknown]
  - Application site oedema [Unknown]
  - Nausea [Unknown]
  - Nodule [Unknown]
  - Vomiting [Unknown]
  - Abdominal pain [Unknown]
  - Diarrhoea [Unknown]
  - Weight decreased [Unknown]
  - Gastric pH decreased [Unknown]

NARRATIVE: CASE EVENT DATE: 20220910
